FAERS Safety Report 20651757 (Version 3)
Quarter: 2022Q2

REPORT INFORMATION
  Report Type: Report from Study
  Country: CO (occurrence: CO)
  Receive Date: 20220330
  Receipt Date: 20220427
  Transmission Date: 20220721
  Serious: Yes (Death, Hospitalization, Other)
  Sender: FDA-Public Use
  Company Number: CO-ABBVIE-22K-036-4335614-00

PATIENT
  Age: 76 Year
  Sex: Female

DRUGS (1)
  1. VENCLEXTA [Suspect]
     Active Substance: VENETOCLAX
     Indication: Chronic lymphocytic leukaemia
     Route: 048
     Dates: start: 20211222, end: 20220331

REACTIONS (10)
  - Bacterial infection [Fatal]
  - Bacteraemia [Fatal]
  - Deafness [Not Recovered/Not Resolved]
  - Eating disorder [Not Recovered/Not Resolved]
  - Inflammation [Not Recovered/Not Resolved]
  - Dysstasia [Not Recovered/Not Resolved]
  - Asthenia [Not Recovered/Not Resolved]
  - Malaise [Not Recovered/Not Resolved]
  - Swelling [Not Recovered/Not Resolved]
  - Decreased appetite [Not Recovered/Not Resolved]

NARRATIVE: CASE EVENT DATE: 20220328
